FAERS Safety Report 11501956 (Version 1)
Quarter: 2015Q3

REPORT INFORMATION
  Report Type: Report from Study
  Country: US (occurrence: US)
  Receive Date: 20150914
  Receipt Date: 20150914
  Transmission Date: 20151125
  Serious: Yes (Other)
  Sender: FDA-Public Use
  Company Number: US-BAYER-2015-417712

PATIENT
  Age: 68 Year
  Sex: Male

DRUGS (15)
  1. STIVARGA [Suspect]
     Active Substance: REGORAFENIB
     Indication: COLORECTAL CANCER
     Dosage: 160 MG, QD
     Route: 048
     Dates: start: 20150827, end: 20150903
  2. DOLASETRON [Concomitant]
     Active Substance: DOLASETRON
  3. LEUCOVORIN. [Concomitant]
     Active Substance: LEUCOVORIN
  4. NEULASTA [Concomitant]
     Active Substance: PEGFILGRASTIM
  5. CALCIUM GLUCONATE. [Concomitant]
     Active Substance: CALCIUM GLUCONATE
  6. DEXAMETHASONE. [Concomitant]
     Active Substance: DEXAMETHASONE
  7. FLUOROURACIL. [Concomitant]
     Active Substance: FLUOROURACIL
  8. GRANISETRON [Concomitant]
     Active Substance: GRANISETRON
  9. OXALIPLATIN. [Concomitant]
     Active Substance: OXALIPLATIN
  10. PROCHLORPERAZINE. [Concomitant]
     Active Substance: PROCHLORPERAZINE
  11. MORPHINE [Concomitant]
     Active Substance: MORPHINE
  12. XANAX [Concomitant]
     Active Substance: ALPRAZOLAM
  13. WARFARIN [Concomitant]
     Active Substance: WARFARIN
  14. MAGNESIUM SULFATE. [Concomitant]
     Active Substance: MAGNESIUM SULFATE
  15. ONDANSETRON [Concomitant]
     Active Substance: ONDANSETRON

REACTIONS (3)
  - Hallucination [Recovered/Resolved]
  - Abdominal pain [Recovered/Resolved]
  - Hiccups [Recovered/Resolved]

NARRATIVE: CASE EVENT DATE: 20150828
